FAERS Safety Report 24178829 (Version 1)
Quarter: 2024Q3

REPORT INFORMATION
  Report Type: Spontaneous
  Country: GB (occurrence: GB)
  Receive Date: 20240806
  Receipt Date: 20240806
  Transmission Date: 20241016
  Serious: Yes (Disabling, Other)
  Sender: PFIZER
  Company Number: None

PATIENT
  Age: 69 Year
  Sex: Male

DRUGS (5)
  1. RITUXIMAB [Suspect]
     Active Substance: RITUXIMAB
     Indication: Nephritis
  2. BUMETANIDE [Concomitant]
     Active Substance: BUMETANIDE
     Indication: Hypertension
  3. LOSARTAN [Concomitant]
     Active Substance: LOSARTAN
     Indication: Hypertension
  4. MINOXIDIL [Concomitant]
     Active Substance: MINOXIDIL
     Indication: Hypertension
  5. QUININE [Concomitant]
     Active Substance: QUININE
     Indication: Muscle spasms

REACTIONS (2)
  - Muscle atrophy [Not Recovered/Not Resolved]
  - Off label use [Unknown]
